FAERS Safety Report 11504947 (Version 1)
Quarter: 2015Q3

REPORT INFORMATION
  Report Type: Spontaneous
  Country: US (occurrence: US)
  Receive Date: 20150915
  Receipt Date: 20150915
  Transmission Date: 20151125
  Serious: No
  Sender: FDA-Public Use
  Company Number: US-ROCHE-793151

PATIENT
  Sex: Female
  Weight: 77.3 kg

DRUGS (2)
  1. RIBAVIRIN. [Suspect]
     Active Substance: RIBAVIRIN
     Indication: HEPATITIS
     Dosage: DURATION OF USE:5 WEEKS
     Route: 048
  2. PEGASYS [Suspect]
     Active Substance: PEGINTERFERON ALFA-2A
     Indication: HEPATITIS
     Dosage: DURATION OF USE:5 WEEKS
     Route: 058

REACTIONS (2)
  - Medication error [Unknown]
  - Product quality issue [Unknown]
